FAERS Safety Report 13612880 (Version 2)
Quarter: 2017Q3

REPORT INFORMATION
  Report Type: Spontaneous
  Country: ID (occurrence: ID)
  Receive Date: 20170605
  Receipt Date: 20170824
  Transmission Date: 20171127
  Serious: Yes (Disabling, Other)
  Sender: FDA-Public Use
  Company Number: ID-APOPHARMA-2017AP010565

PATIENT
  Age: 10 Year
  Sex: Male

DRUGS (6)
  1. DEFEROXAMINE [Concomitant]
     Active Substance: DEFEROXAMINE\DEFEROXAMINE MESYLATE
     Indication: THALASSAEMIA
     Dosage: 40 MG/KG, QD
     Route: 058
     Dates: end: 20170306
  2. FERRIPROX [Suspect]
     Active Substance: DEFERIPRONE
     Indication: THALASSAEMIA
     Dosage: 100 MG/KG, QD
     Route: 048
     Dates: start: 20100709, end: 20170306
  3. DEFEROXAMINE [Concomitant]
     Active Substance: DEFEROXAMINE\DEFEROXAMINE MESYLATE
     Indication: CHELATION THERAPY
  4. VITAMIN E                          /00110501/ [Concomitant]
     Active Substance: TOCOPHEROL
     Indication: PRODUCT USED FOR UNKNOWN INDICATION
     Dosage: 200 MG, BID
     Route: 048
     Dates: start: 20091113
  5. FERRIPROX [Suspect]
     Active Substance: DEFERIPRONE
     Dosage: 70 MG/KG, QD
     Route: 048
     Dates: start: 20170701
  6. FOLIC ACID. [Concomitant]
     Active Substance: FOLIC ACID
     Indication: PRODUCT USED FOR UNKNOWN INDICATION
     Dosage: 5 MG, QD
     Route: 048
     Dates: start: 20091113

REACTIONS (5)
  - Arthralgia [Recovered/Resolved]
  - Gingival bleeding [Recovered/Resolved]
  - Purpura [Unknown]
  - Joint swelling [Recovered/Resolved]
  - Vitamin C deficiency [Recovered/Resolved]

NARRATIVE: CASE EVENT DATE: 201609
